FAERS Safety Report 13360625 (Version 1)
Quarter: 2017Q1

REPORT INFORMATION
  Report Type: Report from Study
  Country: US (occurrence: US)
  Receive Date: 20170322
  Receipt Date: 20170322
  Transmission Date: 20170429
  Serious: Yes (Hospitalization)
  Sender: FDA-Public Use
  Company Number: US-ACTELION-A-NJ2013-86895

PATIENT
  Age: 72 Year
  Sex: Female

DRUGS (12)
  1. IRON [Concomitant]
     Active Substance: IRON
  2. ADVAIR HFA [Concomitant]
     Active Substance: FLUTICASONE PROPIONATE\SALMETEROL XINAFOATE
  3. OMEPRAZOLE. [Concomitant]
     Active Substance: OMEPRAZOLE
  4. VERAPAMIL HCL [Concomitant]
     Active Substance: VERAPAMIL HYDROCHLORIDE
  5. SILDENAFIL. [Concomitant]
     Active Substance: SILDENAFIL
  6. ENALAPRIL MALEATE. [Concomitant]
     Active Substance: ENALAPRIL MALEATE
  7. CALCIUM [Concomitant]
     Active Substance: CALCIUM
  8. TRACLEER [Suspect]
     Active Substance: BOSENTAN
     Indication: PULMONARY ARTERIAL HYPERTENSION
     Dosage: 125 MG, BID
     Route: 048
  9. VICODIN [Concomitant]
     Active Substance: ACETAMINOPHEN\HYDROCODONE BITARTRATE
  10. PAROXETINE. [Concomitant]
     Active Substance: PAROXETINE
  11. FUROSEMIDE. [Concomitant]
     Active Substance: FUROSEMIDE
  12. SIMVASTATIN. [Concomitant]
     Active Substance: SIMVASTATIN

REACTIONS (4)
  - Gastrointestinal haemorrhage [Recovered/Resolved]
  - Diverticulum intestinal haemorrhagic [Recovered/Resolved]
  - Large intestinal haemorrhage [Unknown]
  - Gastrointestinal disorder [Recovered/Resolved]

NARRATIVE: CASE EVENT DATE: 20130722
